FAERS Safety Report 8523189-1 (Version None)
Quarter: 2012Q3

REPORT INFORMATION
  Report Type: 
  Country: None (occurrence: None)
  Receive Date: 20120720
  Receipt Date: 20120718
  Transmission Date: 20120928
  Serious: No
  Sender: FDA-Public Use
  Company Number: US-BAYER-2012-072298

PATIENT
  Age: 58 Year
  Sex: Female

DRUGS (5)
  1. ESCITALOPRAM [Concomitant]
     Dosage: 10 MG, UNK
  2. VITAMIN D [Concomitant]
     Dosage: 1000 U, UNK
  3. FISH OIL [Concomitant]
  4. BETASERON [Suspect]
     Dosage: 0.3 MG, QOD
     Route: 058
  5. ASPIRIN [Concomitant]
     Dosage: 81 MG, UNK

REACTIONS (2)
  - INJECTION SITE ERYTHEMA [None]
  - PRURITUS GENERALISED [None]
